FAERS Safety Report 25507985 (Version 1)
Quarter: 2025Q3

REPORT INFORMATION
  Report Type: Spontaneous
  Country: PR (occurrence: PR)
  Receive Date: 20250703
  Receipt Date: 20250703
  Transmission Date: 20251020
  Serious: No
  Sender: ABBVIE
  Company Number: PR-ABBVIE-6355291

PATIENT

DRUGS (1)
  1. RISANKIZUMAB [Suspect]
     Active Substance: RISANKIZUMAB
     Indication: Inflammatory bowel disease
     Route: 058

REACTIONS (1)
  - Granulomatous liver disease [Recovering/Resolving]
